FAERS Safety Report 24399612 (Version 1)
Quarter: 2024Q4

REPORT INFORMATION
  Report Type: Spontaneous
  Country: CN (occurrence: CN)
  Receive Date: 20241005
  Receipt Date: 20241005
  Transmission Date: 20250114
  Serious: Yes (Other)
  Sender: ACCORD
  Company Number: CN-MLMSERVICE-20240919-PI196576-00101-1

PATIENT
  Age: 40 Year
  Sex: Female
  Weight: 56 kg

DRUGS (8)
  1. CISPLATIN [Suspect]
     Active Substance: CISPLATIN
     Indication: Skin cancer metastatic
     Dosage: RECEIVED TWO CYCLES
     Dates: start: 202103, end: 202104
  2. PACLITAXEL [Suspect]
     Active Substance: PACLITAXEL
     Indication: Hair follicle tumour benign
     Dosage: RECEIVED TWO CYCLES
     Dates: start: 202103, end: 202104
  3. PACLITAXEL [Suspect]
     Active Substance: PACLITAXEL
     Indication: Metastases to salivary gland
     Dosage: RECEIVED TWO CYCLES
     Dates: start: 202103, end: 202104
  4. CISPLATIN [Suspect]
     Active Substance: CISPLATIN
     Indication: Hair follicle tumour benign
     Dosage: RECEIVED TWO CYCLES
     Dates: start: 202103, end: 202104
  5. CISPLATIN [Suspect]
     Active Substance: CISPLATIN
     Indication: Metastases to salivary gland
     Dosage: RECEIVED TWO CYCLES
     Dates: start: 202103, end: 202104
  6. PACLITAXEL [Suspect]
     Active Substance: PACLITAXEL
     Indication: Skin cancer metastatic
     Dosage: RECEIVED TWO CYCLES
     Dates: start: 202103, end: 202104
  7. PACLITAXEL [Suspect]
     Active Substance: PACLITAXEL
     Indication: Metastases to lymph nodes
     Dosage: RECEIVED TWO CYCLES
     Dates: start: 202103, end: 202104
  8. CISPLATIN [Suspect]
     Active Substance: CISPLATIN
     Indication: Metastases to lymph nodes
     Dosage: RECEIVED TWO CYCLES
     Dates: start: 202103, end: 202104

REACTIONS (3)
  - Thrombocytopenia [Unknown]
  - Neutropenia [Unknown]
  - Pneumonia [Unknown]

NARRATIVE: CASE EVENT DATE: 20210101
